FAERS Safety Report 7997544-2 (Version None)
Quarter: 2011Q4

REPORT INFORMATION
  Report Type: 
  Country: None (occurrence: None)
  Receive Date: 20111221
  Receipt Date: 20111209
  Transmission Date: 20120403
  Serious: Yes (Other)
  Sender: FDA-Public Use
  Company Number: FR-PFIZER INC-2011306697

PATIENT
  Age: 69 Year
  Sex: Male

DRUGS (7)
  1. CORDARONE [Suspect]
     Indication: ATRIAL FIBRILLATION
  2. PLAVIX [Concomitant]
     Dosage: 1 DF, DAILY
  3. HEMIDIGOXIN [Concomitant]
     Dosage: 0.125 MG, DAILY
  4. CORDARONE [Suspect]
     Indication: ARRHYTHMIA
     Dosage: 1 DOSE FORM, 200 MG DAILY
     Route: 048
     Dates: start: 20100301, end: 20111121
  5. ATORVASTATIN CALCIUM [Concomitant]
     Dosage: 40 MG, DAILY
  6. RAMIPRIL [Concomitant]
     Dosage: 10 MG, DAILY
  7. PREVISCAN [Concomitant]
     Dosage: UNK

REACTIONS (6)
  - VISUAL ACUITY REDUCED [None]
  - OPTIC ATROPHY [None]
  - CORNEAL DISORDER [None]
  - VISUAL IMPAIRMENT [None]
  - CORNEAL DEPOSITS [None]
  - PAPILLOEDEMA [None]
